FAERS Safety Report 19092851 (Version 1)
Quarter: 2021Q2

REPORT INFORMATION
  Report Type: Spontaneous
  Country: DE (occurrence: DE)
  Receive Date: 20210405
  Receipt Date: 20210405
  Transmission Date: 20210717
  Serious: Yes (Hospitalization)
  Sender: FDA-Public Use
  Company Number: NVSC2021DE068803

PATIENT
  Age: 18 Year
  Sex: Male
  Weight: 73 kg

DRUGS (2)
  1. PROMETHAZINE [Suspect]
     Active Substance: PROMETHAZINE HYDROCHLORIDE
     Indication: SLEEP DISORDER
     Dosage: 10 MG
     Route: 048
     Dates: start: 202011, end: 202011
  2. CANNABIS [Interacting]
     Active Substance: CANNABIS SATIVA SUBSP. INDICA TOP
     Indication: SLEEP DISORDER
     Dosage: 0.5G (22 % THC)
     Route: 055
     Dates: start: 202011, end: 202012

REACTIONS (6)
  - Psychological trauma [Recovering/Resolving]
  - Pain [Recovered/Resolved]
  - Tremor [Recovered/Resolved]
  - Panic disorder [Recovering/Resolving]
  - Drug interaction [Unknown]
  - Somatic symptom disorder [Recovering/Resolving]

NARRATIVE: CASE EVENT DATE: 202011
